FAERS Safety Report 7464834-1 (Version None)
Quarter: 2011Q2

REPORT INFORMATION
  Report Type: 
  Country: None (occurrence: None)
  Receive Date: 20110502
  Receipt Date: 20110502
  Transmission Date: 20111010
  Serious: No
  Sender: FDA-Public Use
  Company Number: None

PATIENT
  Age: 58 Year
  Sex: Male
  Weight: 90.7194 kg

DRUGS (1)
  1. TRIAD MEDIUM ALCOHOL PREP PAD [Suspect]
     Indication: THERAPEUTIC SKIN CARE TOPICAL
     Dosage: 1 18 MONTHS@2-3 WKS TOP
     Route: 061

REACTIONS (3)
  - PRODUCT QUALITY ISSUE [None]
  - APPLICATION SITE INFECTION [None]
  - TRANSMISSION OF AN INFECTIOUS AGENT VIA A MEDICINAL PRODUCT [None]
